FAERS Safety Report 9953960 (Version 2)
Quarter: 2014Q1

REPORT INFORMATION
  Report Type: Spontaneous
  Country: FR (occurrence: FR)
  Receive Date: 20140304
  Receipt Date: 20140317
  Transmission Date: 20141002
  Serious: Yes (Hospitalization, Other)
  Sender: FDA-Public Use
  Company Number: FR-PFIZER INC-2014056823

PATIENT
  Age: 77 Year
  Sex: Female
  Weight: 85 kg

DRUGS (5)
  1. TAHOR [Suspect]
     Indication: ACUTE CORONARY SYNDROME
     Dosage: 10 MG, DAILY
     Route: 048
     Dates: start: 20130823
  2. BRILIQUE [Suspect]
     Indication: ACUTE CORONARY SYNDROME
     Dosage: 90 MG, 2X/DAY
     Route: 048
     Dates: start: 20130823, end: 20130830
  3. KARDEGIC [Suspect]
     Indication: ACUTE CORONARY SYNDROME
     Dosage: 75 MG, DAILY
     Route: 048
     Dates: start: 20130823
  4. PANTOPRAZOLE [Concomitant]
     Dosage: 40 MG, DAILY
     Route: 048
     Dates: start: 20130823
  5. BISOPROLOL [Concomitant]
     Indication: HYPERTENSION
     Dosage: 2.5 MG, DAILY
     Route: 048
     Dates: start: 20130823

REACTIONS (4)
  - Dyspnoea [Recovered/Resolved]
  - Abdominal pain upper [Unknown]
  - Gastritis [Unknown]
  - Liver function test abnormal [Unknown]
